FAERS Safety Report 5345386-9 (Version None)
Quarter: 2007Q2

REPORT INFORMATION
  Report Type: 
  Country: None (occurrence: None)
  Receive Date: 20070605
  Receipt Date: 20070525
  Transmission Date: 20071010
  Serious: Yes (Other)
  Sender: FDA-Public Use
  Company Number: PHEH2007US07967

PATIENT
  Age: 48 Year
  Sex: Female

DRUGS (2)
  1. LOTREL [Suspect]
     Indication: HYPERTENSION
     Dosage: UNK, QD
     Route: 048
     Dates: start: 20061201, end: 20070525
  2. DIOVAN [Suspect]
     Indication: HYPERTENSION
     Dosage: UNK, QD
     Route: 048
     Dates: start: 20061201, end: 20070525

REACTIONS (4)
  - DIZZINESS [None]
  - ELECTROCARDIOGRAM ABNORMAL [None]
  - HOT FLUSH [None]
  - PANIC ATTACK [None]
